FAERS Safety Report 8275030-2 (Version None)
Quarter: 2012Q2

REPORT INFORMATION
  Report Type: 
  Country: None (occurrence: None)
  Receive Date: 20120411
  Receipt Date: 20120404
  Transmission Date: 20120825
  Serious: Yes (Hospitalization, Other)
  Sender: FDA-Public Use
  Company Number: JP-MEDIMMUNE-MEDI-0015091

PATIENT
  Sex: Male
  Weight: 1.8 kg

DRUGS (1)
  1. SYNAGIS [Suspect]
     Route: 030
     Dates: start: 20120207, end: 20120207

REACTIONS (4)
  - SLUGGISHNESS [None]
  - PYREXIA [None]
  - JAUNDICE ACHOLURIC [None]
  - VIRAL INFECTION [None]
